FAERS Safety Report 19889079 (Version 1)
Quarter: 2021Q3

REPORT INFORMATION
  Report Type: Report from Study
  Country: US (occurrence: US)
  Receive Date: 20210927
  Receipt Date: 20210927
  Transmission Date: 20211014
  Serious: Yes (Hospitalization, Other)
  Sender: FDA-Public Use
  Company Number: US-UCBSA-2021040857

PATIENT
  Age: 69 Year
  Sex: Male
  Weight: 96.6 kg

DRUGS (14)
  1. TAMSULOSIN [Concomitant]
     Active Substance: TAMSULOSIN
     Indication: PRODUCT USED FOR UNKNOWN INDICATION
  2. PROBIOTICS NOS [Concomitant]
     Active Substance: PROBIOTICS NOS
     Indication: PRODUCT USED FOR UNKNOWN INDICATION
  3. LACOSAMIDE. [Suspect]
     Active Substance: LACOSAMIDE
     Indication: SEIZURE
     Dosage: 150 MILLIGRAM, 2X/DAY (BID)
  4. KEPPRA [Suspect]
     Active Substance: LEVETIRACETAM
     Indication: PRODUCT USED FOR UNKNOWN INDICATION
  5. ASPIRIN 81 [Concomitant]
     Active Substance: ASPIRIN
     Indication: PRODUCT USED FOR UNKNOWN INDICATION
  6. DOXYCYCLINE HYCLATE. [Concomitant]
     Active Substance: DOXYCYCLINE HYCLATE
     Indication: PRODUCT USED FOR UNKNOWN INDICATION
  7. ENTRESTO [Concomitant]
     Active Substance: SACUBITRIL\VALSARTAN
     Indication: PRODUCT USED FOR UNKNOWN INDICATION
  8. ZYRTEC [Concomitant]
     Active Substance: CETIRIZINE HYDROCHLORIDE
     Indication: PRODUCT USED FOR UNKNOWN INDICATION
  9. FINASTERIDE. [Concomitant]
     Active Substance: FINASTERIDE
     Indication: PRODUCT USED FOR UNKNOWN INDICATION
  10. LASIX [Concomitant]
     Active Substance: FUROSEMIDE
     Indication: PRODUCT USED FOR UNKNOWN INDICATION
  11. METOPROLOL TARTRATE. [Concomitant]
     Active Substance: METOPROLOL TARTRATE
     Indication: PRODUCT USED FOR UNKNOWN INDICATION
  12. TRESIBA [Concomitant]
     Active Substance: INSULIN DEGLUDEC
     Indication: PRODUCT USED FOR UNKNOWN INDICATION
  13. WARFARIN [Concomitant]
     Active Substance: WARFARIN
     Indication: PRODUCT USED FOR UNKNOWN INDICATION
  14. ESCITALOPRAM [Concomitant]
     Active Substance: ESCITALOPRAM OXALATE
     Indication: PRODUCT USED FOR UNKNOWN INDICATION

REACTIONS (34)
  - Hyperlipidaemia [Unknown]
  - Cough [Unknown]
  - Pollakiuria [Unknown]
  - Haemorrhage intracranial [Unknown]
  - Atrial flutter [Unknown]
  - Asthenia [Unknown]
  - Type 2 diabetes mellitus [Unknown]
  - Hallucination [Unknown]
  - Aortic valve incompetence [Unknown]
  - Oedema peripheral [Recovered/Resolved]
  - Renal cyst [Unknown]
  - Aortic valve replacement [Unknown]
  - Hypersensitivity [Unknown]
  - Colon adenoma [Unknown]
  - Orthostatic hypotension [Unknown]
  - Dizziness [Unknown]
  - Vasomotor rhinitis [Unknown]
  - Benign prostatic hyperplasia [Unknown]
  - Pancreatitis [Unknown]
  - Depression [Unknown]
  - Vocal cord disorder [Unknown]
  - Heart valve replacement [Unknown]
  - Iron deficiency anaemia [Unknown]
  - Urinary tract obstruction [Unknown]
  - Meniere^s disease [Unknown]
  - Diverticulum intestinal [Unknown]
  - Hypertension [Unknown]
  - Atrial fibrillation [Unknown]
  - Dyspnoea [Unknown]
  - Urine flow decreased [Unknown]
  - Cardiac pacemaker insertion [Unknown]
  - Chronic kidney disease [Unknown]
  - Staphylococcal infection [Unknown]
  - Gastrooesophageal reflux disease [Unknown]

NARRATIVE: CASE EVENT DATE: 20120912
